FAERS Safety Report 7380743-0 (Version None)
Quarter: 2011Q1

REPORT INFORMATION
  Report Type: 
  Country: None (occurrence: None)
  Receive Date: 20110321
  Receipt Date: 20110301
  Transmission Date: 20110831
  Serious: Yes (Other)
  Sender: FDA-Public Use
  Company Number: 20110166

PATIENT
  Sex: Female

DRUGS (1)
  1. CYANOCOBALAMIN INJECTION, USP (0130-05) 1000 UG/ML [Suspect]
     Dates: start: 20110105, end: 20110216

REACTIONS (4)
  - ARTHRALGIA [None]
  - MYALGIA [None]
  - HYPERSOMNIA [None]
  - FATIGUE [None]
